FAERS Safety Report 7387740-X (Version None)
Quarter: 2011Q1

REPORT INFORMATION
  Report Type: 
  Country: None (occurrence: None)
  Receive Date: 20110331
  Receipt Date: 20110325
  Transmission Date: 20110831
  Serious: Yes (Other)
  Sender: FDA-Public Use
  Company Number: US-GENZYME-FLUD-1000950

PATIENT
  Age: 62 Year

DRUGS (7)
  1. MELPHALAN [Suspect]
     Indication: MYELOFIBROSIS
     Dosage: 70 MG/M2 X 2
     Route: 065
  2. TACROLIMUS [Concomitant]
     Indication: PROPHYLAXIS AGAINST GRAFT VERSUS HOST DISEASE
     Route: 065
  3. CAMPATH [Suspect]
     Indication: STEM CELL TRANSPLANT
  4. FLUDARA [Suspect]
     Indication: STEM CELL TRANSPLANT
  5. CAMPATH [Suspect]
     Indication: MYELOFIBROSIS
     Dosage: 3 X 10 MG
     Route: 065
  6. MELPHALAN [Suspect]
     Indication: STEM CELL TRANSPLANT
  7. FLUDARA [Suspect]
     Indication: MYELOFIBROSIS
     Dosage: 5 X 15 MG/M2
     Route: 065

REACTIONS (2)
  - ACUTE GRAFT VERSUS HOST DISEASE [None]
  - CHRONIC GRAFT VERSUS HOST DISEASE [None]
